FAERS Safety Report 8501940-4 (Version None)
Quarter: 2012Q2

REPORT INFORMATION
  Report Type: 
  Country: None (occurrence: None)
  Receive Date: 20120405
  Receipt Date: 20110317
  Transmission Date: 20120825
  Serious: Yes (Other)
  Sender: FDA-Public Use
  Company Number: PHHY2011US22468

PATIENT
  Sex: Female

DRUGS (9)
  1. VITAMIN E [Concomitant]
  2. CENTRUM SILVER (ASCORBIC ACID, CALCIUM, MINERALS NOS, RETINOL, TOCOPHE [Concomitant]
  3. RECLAST [Suspect]
     Dosage: 5 MG, INTRAVENOUS
     Route: 042
     Dates: start: 20101129
  4. ASPIRIN [Concomitant]
  5. TRILIPIX [Concomitant]
  6. CRESTOR (ROSUVASTATIN CALSIUM) [Concomitant]
  7. CALCIUM CARBONATE [Concomitant]
  8. ULTRACET [Concomitant]
  9. ASCORBIC ACID [Concomitant]

REACTIONS (6)
  - CHILLS [None]
  - FATIGUE [None]
  - PYREXIA [None]
  - HEADACHE [None]
  - ARTHRITIS [None]
  - INFLUENZA LIKE ILLNESS [None]
